FAERS Safety Report 7445396-1 (Version None)
Quarter: 2011Q2

REPORT INFORMATION
  Report Type: 
  Country: None (occurrence: None)
  Receive Date: 20110420
  Receipt Date: 20110411
  Transmission Date: 20111010
  Serious: Yes (Death)
  Sender: FDA-Public Use
  Company Number: 1000020104

PATIENT
  Age: 78 Year
  Sex: Male
  Weight: 64 kg

DRUGS (5)
  1. RISPERIDONE (RTSPERIDONE) (TABLETS)(RISPERIDONE) [Concomitant]
  2. OLANZAPINE (OLANZAPINE) (TABLETS ) (OLANZAPTNE) [Concomitant]
  3. RABEPRAZOLE SODIUM [Suspect]
     Dosage: 20  MG (20 MG, 1 IN 1 D), ORAL
     Route: 048
  4. CITALOPRAM HYDROBROMIDE [Suspect]
     Dosage: ORAL
     Route: 048
     Dates: start: 20100408
  5. OXAZEPAM (OXAZEPAM) (OXAZEPAM) [Concomitant]

REACTIONS (1)
  - DRUG LEVEL ABOVE THERAPEUTIC [None]
